FAERS Safety Report 7792424-X (Version None)
Quarter: 2011Q3

REPORT INFORMATION
  Report Type: 
  Country: None (occurrence: None)
  Receive Date: 20110930
  Receipt Date: 20110930
  Transmission Date: 20111222
  Serious: Yes (Other)
  Sender: FDA-Public Use
  Company Number: None

PATIENT
  Sex: Female
  Weight: 60.3284 kg

DRUGS (2)
  1. GABAPENTIN [Suspect]
     Indication: INTERVERTEBRAL DISC PROTRUSION
     Dosage: ONE CAPSULE THREE TIMES MOUTH
     Route: 048
     Dates: start: 20110716, end: 20110909
  2. GABAPENTIN [Suspect]
     Indication: INTERVERTEBRAL DISC OPERATION
     Dosage: ONE CAPSULE THREE TIMES MOUTH
     Route: 048
     Dates: start: 20110716, end: 20110909

REACTIONS (12)
  - GINGIVITIS [None]
  - RASH [None]
  - BREAST DISCHARGE [None]
  - INSOMNIA [None]
  - OROPHARYNGEAL BLISTERING [None]
  - PELVIC PAIN [None]
  - STOMATITIS [None]
  - LIP SWELLING [None]
  - ANAL PRURITUS [None]
  - BREAST SWELLING [None]
  - VULVOVAGINAL PRURITUS [None]
  - TOOTH ABSCESS [None]
